FAERS Safety Report 4684276-1 (Version None)
Quarter: 2005Q2

REPORT INFORMATION
  Report Type: 
  Country: None (occurrence: None)
  Receive Date: 20050531
  Receipt Date: 20041006
  Transmission Date: 20051028
  Serious: Yes (Other)
  Sender: FDA-Public Use
  Company Number: 200417644US

PATIENT
  Age: 90 Year
  Sex: Female

DRUGS (2)
  1. LOVENOX [Suspect]
  2. WARFARIN SODIUIM (COUMADINE) [Concomitant]

REACTIONS (2)
  - CONTUSION [None]
  - HAEMORRHAGE [None]
